FAERS Safety Report 9000982 (Version 1)
Quarter: 2012Q4

REPORT INFORMATION
  Report Type: Spontaneous
  Country: GB (occurrence: None)
  Receive Date: 20121226
  Receipt Date: 20121226
  Transmission Date: 20130627
  Serious: Yes (Hospitalization, Other)
  Sender: FDA-Public Use
  Company Number: AUR-APL-2012-05435

PATIENT
  Age: 81 Year
  Sex: Male

DRUGS (17)
  1. AMOXICILLIN AND CLAVULANIC ACID [Suspect]
     Indication: URINARY TRACT INFECTION
     Route: 048
     Dates: start: 20121128, end: 20121130
  2. TAZOCIN (PIP/TAZO) [Suspect]
     Indication: MUMPS ORCHITIS
     Route: 042
     Dates: start: 20121130, end: 20121203
  3. CEFALEXIN (CEFALEXIN) [Concomitant]
  4. BISOPROLOL (BISOPROLOL) [Concomitant]
  5. CARBAMAZEPINE (CARBAMAZEPINE) CHEWABLE TABLET [Concomitant]
  6. DIGOXIN (DIGOXIN) [Concomitant]
  7. FUROSEMIDE (FUROSEMIDE) [Concomitant]
  8. LATANOPROST (LATANOPROST) (NONE) [Concomitant]
  9. OMEPRAZOLE (OMEPRAZOLE) [Concomitant]
  10. PREGABALINE (PREGABALIN) [Concomitant]
  11. RAMIPRIL (RAMIPRIL) [Concomitant]
  12. SALBUTAMOL (SALBUTAMOL) [Concomitant]
  13. SERETIDE (SERETIDE /01420901/) [Concomitant]
  14. SIMVASTATIN (SIMVASTATIN) [Concomitant]
  15. TIOTROPIUM (TIOTROPIUM) [Concomitant]
  16. PARACETAMOL (PARACETAMOL) [Concomitant]
  17. WARFARIN (WARFARIN) [Concomitant]

REACTIONS (6)
  - Encephalopathy [None]
  - Pain [None]
  - Pyrexia [None]
  - Drug hypersensitivity [None]
  - Rash [None]
  - Hyperaesthesia [None]
